FAERS Safety Report 5799325-7 (Version None)
Quarter: 2008Q3

REPORT INFORMATION
  Report Type: 
  Country: None (occurrence: None)
  Receive Date: 20080702
  Receipt Date: 20080620
  Transmission Date: 20090109
  Serious: Yes (Other)
  Sender: FDA-Public Use
  Company Number: FR-PFIZER INC-2008052696

PATIENT
  Sex: Male

DRUGS (8)
  1. ZYVOXID TABLET [Suspect]
     Indication: STAPHYLOCOCCAL INFECTION
     Route: 048
     Dates: start: 20080603, end: 20080612
  2. MIANSERIN [Suspect]
     Indication: DEPRESSION
     Route: 048
  3. CASPOFUNGIN ACETATE [Concomitant]
     Route: 042
     Dates: start: 20080527, end: 20080605
  4. AMIODARONE HCL [Concomitant]
     Route: 048
     Dates: start: 20080526, end: 20080612
  5. ESOMEPRAZOLE MAGNESIUM [Concomitant]
     Route: 048
  6. METHYLPREDNISOLONE [Concomitant]
     Route: 042
  7. LOPERAMIDE HYDROCHLORIDE [Concomitant]
     Route: 048
     Dates: start: 20080609, end: 20080612
  8. DIOSMECTITE [Concomitant]
     Route: 048
     Dates: start: 20080608, end: 20080616

REACTIONS (6)
  - ABNORMAL BEHAVIOUR [None]
  - AGGRESSION [None]
  - CLONUS [None]
  - CONFUSIONAL STATE [None]
  - ENCEPHALOPATHY [None]
  - FACIAL SPASM [None]
